FAERS Safety Report 11716488 (Version 5)
Quarter: 2016Q1

REPORT INFORMATION
  Report Type: Report from Study
  Country: BR (occurrence: BR)
  Receive Date: 20151109
  Receipt Date: 20160113
  Transmission Date: 20160525
  Serious: Yes (Other)
  Sender: FDA-Public Use
  Company Number: PHHY2015BR108902

PATIENT
  Sex: Male
  Weight: 82 kg

DRUGS (8)
  1. EXJADE [Suspect]
     Active Substance: DEFERASIROX
     Indication: MYELODYSPLASTIC SYNDROME
     Dosage: 30 MG/KG, (6 DF OF 500 MG)
     Route: 048
     Dates: start: 2013
  2. EXJADE [Suspect]
     Active Substance: DEFERASIROX
     Dosage: 25 MG/KG, (5 DF OF 500 MG)
     Route: 048
  3. EXJADE [Suspect]
     Active Substance: DEFERASIROX
     Dosage: 30 MG/KG, QD (6 DF OF 500 MG)
     Route: 048
  4. PANTOPRAZOLE [Concomitant]
     Active Substance: PANTOPRAZOLE SODIUM
     Indication: ABDOMINAL DISCOMFORT
     Dosage: 1 DF, QD
     Route: 048
  5. BACTRIM [Concomitant]
     Active Substance: SULFAMETHOXAZOLE\TRIMETHOPRIM
     Indication: DECREASED IMMUNE RESPONSIVENESS
     Dosage: 2 DF, QW3
     Route: 048
  6. MYLANTA PLUS [Concomitant]
     Active Substance: ALUMINUM HYDROXIDE\DIMETHICONE\MAGNESIUM HYDROXIDE
     Indication: ABDOMINAL DISCOMFORT
     Dosage: 1 TSP, QD
     Route: 048
  7. MYLANTA PLUS [Concomitant]
     Active Substance: ALUMINUM HYDROXIDE\DIMETHICONE\MAGNESIUM HYDROXIDE
     Indication: PAIN PROPHYLAXIS
  8. PANTOPRAZOLE [Concomitant]
     Active Substance: PANTOPRAZOLE SODIUM
     Indication: PAIN PROPHYLAXIS

REACTIONS (25)
  - Feeling abnormal [Unknown]
  - Weight decreased [Unknown]
  - Weight increased [Not Recovered/Not Resolved]
  - Hunger [Not Recovered/Not Resolved]
  - Nephrolithiasis [Unknown]
  - Gait disturbance [Unknown]
  - Libido disorder [Unknown]
  - Malaise [Recovering/Resolving]
  - Hyperphagia [Not Recovered/Not Resolved]
  - Nausea [Recovered/Resolved]
  - Nasopharyngitis [Unknown]
  - Cardiomegaly [Unknown]
  - Diarrhoea [Recovering/Resolving]
  - Asthenia [Recovered/Resolved]
  - Renal pain [Unknown]
  - Pain in extremity [Unknown]
  - Heart rate abnormal [Unknown]
  - Hypophagia [Recovering/Resolving]
  - Glucose tolerance impaired [Recovering/Resolving]
  - Exostosis [Recovering/Resolving]
  - Swelling [Unknown]
  - Wrong technique in product usage process [Unknown]
  - Migraine [Not Recovered/Not Resolved]
  - Chest pain [Unknown]
  - Blood iron increased [Recovering/Resolving]
